FAERS Safety Report 15312252 (Version 4)
Quarter: 2018Q4

REPORT INFORMATION
  Report Type: Report from Study
  Country: DE (occurrence: DE)
  Receive Date: 20180823
  Receipt Date: 20181217
  Transmission Date: 20190204
  Serious: Yes (Hospitalization, Other)
  Sender: FDA-Public Use
  Company Number: DE-TEVA-2018-DE-946985

PATIENT
  Age: 77 Year
  Sex: Female
  Weight: 50 kg

DRUGS (13)
  1. CAPECITABINE. [Suspect]
     Active Substance: CAPECITABINE
     Indication: BREAST CANCER
     Dosage: 1500 MILLIGRAM DAILY; DAILY DOSE: 1500 MG MILLIGRAM(S) EVERY DAY
     Route: 048
     Dates: start: 20150209, end: 20150222
  2. BEVACIZUMAB. [Suspect]
     Active Substance: BEVACIZUMAB
     Indication: BREAST CANCER
     Route: 042
     Dates: start: 20141120, end: 20141120
  3. DEXA (GERMANY) [Concomitant]
     Indication: FATIGUE
     Route: 042
     Dates: start: 20150417, end: 20150419
  4. METOCLOPRAMIDE. [Concomitant]
     Active Substance: METOCLOPRAMIDE
     Indication: DECREASED APPETITE
     Route: 042
     Dates: start: 20150417, end: 20150419
  5. CAPECITABINE. [Suspect]
     Active Substance: CAPECITABINE
     Dosage: 1500 MILLIGRAM DAILY; DAILY DOSE: 1500 MG MILLIGRAM(S) EVERY DAY
     Route: 048
     Dates: start: 20141208, end: 20141211
  6. CAPECITABINE. [Suspect]
     Active Substance: CAPECITABINE
     Dosage: 1500 MILLIGRAM DAILY;
     Route: 048
     Dates: end: 20150401
  7. TUTOFUSIN [Concomitant]
     Indication: FATIGUE
     Dosage: TUTOFUSIN HG 5
     Route: 042
     Dates: start: 20150227, end: 20150227
  8. SODIUM CHLORIDE. [Concomitant]
     Active Substance: SODIUM CHLORIDE
     Indication: RENAL FUNCTION TEST ABNORMAL
     Dosage: SODIUM CHLORIDE 0.9 %
     Route: 042
     Dates: start: 20150319, end: 20150323
  9. CAPECITABINE. [Suspect]
     Active Substance: CAPECITABINE
     Dosage: 1500 MILLIGRAM DAILY; DAILY DOSE: 1500 MG MILLIGRAM(S) EVERY DAY
     Route: 048
     Dates: start: 20141124, end: 20141207
  10. BEVACIZUMAB. [Suspect]
     Active Substance: BEVACIZUMAB
     Indication: BREAST CANCER
     Route: 042
     Dates: start: 20141204, end: 20150410
  11. LASIX [Concomitant]
     Active Substance: FUROSEMIDE
     Indication: RENAL FUNCTION TEST ABNORMAL
     Route: 042
     Dates: start: 20150313, end: 20150331
  12. TUTOFUSIN [Concomitant]
     Dosage: TUTOFUSIN HG 5
     Route: 042
     Dates: start: 20150417, end: 20150419
  13. DEXA (GERMANY) [Concomitant]
     Indication: DECREASED APPETITE
     Route: 065

REACTIONS (2)
  - Diarrhoea [Recovered/Resolved]
  - Enteritis [Recovered/Resolved]

NARRATIVE: CASE EVENT DATE: 20141211
